FAERS Safety Report 9218445 (Version 1)
Quarter: 2013Q2

REPORT INFORMATION
  Report Type: Spontaneous
  Country: US (occurrence: US)
  Receive Date: 20130409
  Receipt Date: 20130409
  Transmission Date: 20140414
  Serious: No
  Sender: FDA-Public Use
  Company Number: US-009507513-1304USA002466

PATIENT
  Age: 79 Year
  Sex: Female

DRUGS (1)
  1. SINGULAIR [Suspect]
     Indication: ASTHMA
     Route: 048

REACTIONS (8)
  - Pharyngeal oedema [Unknown]
  - Asthma [Unknown]
  - Nasal oedema [Unknown]
  - Chest discomfort [Unknown]
  - Dyspnoea [Unknown]
  - Heart rate increased [Unknown]
  - Anxiety [Unknown]
  - Depression [Unknown]
